FAERS Safety Report 9465451 (Version 2)
Quarter: 2014Q1

REPORT INFORMATION
  Report Type: Spontaneous
  Country: FR (occurrence: FR)
  Receive Date: 20130820
  Receipt Date: 20140131
  Transmission Date: 20141002
  Serious: Yes (Hospitalization)
  Sender: FDA-Public Use
  Company Number: FR-MERCK-1308FRA005151

PATIENT
  Age: 24 Year
  Sex: Male

DRUGS (1)
  1. STROMECTOL [Suspect]
     Indication: ACARODERMATITIS
     Dosage: 1 DF, ONCE
     Route: 048
     Dates: start: 20130717, end: 20130717

REACTIONS (1)
  - Lip oedema [Recovered/Resolved]
